FAERS Safety Report 9714785 (Version 1)
Quarter: 2013Q4

REPORT INFORMATION
  Report Type: Spontaneous
  Country: KR (occurrence: KR)
  Receive Date: 20131126
  Receipt Date: 20131126
  Transmission Date: 20140711
  Serious: Yes (Other)
  Sender: FDA-Public Use
  Company Number: KR-MYLANLABS-2013S1026185

PATIENT
  Age: 45 Year
  Sex: Male

DRUGS (3)
  1. OXALIPLATIN [Suspect]
     Indication: ADENOCARCINOMA OF COLON
     Dosage: 12 CYCLES WERE ADMINISTERED
     Route: 065
  2. FOLINIC ACID [Suspect]
     Indication: ADENOCARCINOMA OF COLON
     Dosage: 12 CYCLES WERE ADMINISTERED
     Route: 065
  3. FLUOROURACIL [Suspect]
     Indication: ADENOCARCINOMA OF COLON
     Dosage: 12 CYCLES WERE ADMINISTERED
     Route: 065

REACTIONS (3)
  - Hepatic fibrosis [Unknown]
  - Splenomegaly [Unknown]
  - Thrombocytopenia [Unknown]
